FAERS Safety Report 11007002 (Version 1)
Quarter: 2015Q2

REPORT INFORMATION
  Report Type: Spontaneous
  Country: None (occurrence: US)
  Receive Date: 20150409
  Receipt Date: 20150409
  Transmission Date: 20150821
  Serious: No
  Sender: FDA-Public Use
  Company Number: US-ALLERGAN-1503607US

PATIENT
  Age: 56 Year
  Sex: Female

DRUGS (2)
  1. LATISSE [Suspect]
     Active Substance: BIMATOPROST
     Indication: GROWTH OF EYELASHES
     Dosage: 2 GTT, UNK
     Route: 061
     Dates: start: 20150203, end: 201502
  2. LATISSE [Suspect]
     Active Substance: BIMATOPROST
     Dosage: UNK
     Route: 061

REACTIONS (9)
  - Eyelids pruritus [Recovered/Resolved]
  - Eye swelling [Recovered/Resolved]
  - Eye pain [Recovered/Resolved]
  - Hypersensitivity [Recovered/Resolved]
  - Erythema of eyelid [Recovered/Resolved]
  - Eyelid irritation [Recovered/Resolved]
  - Paraesthesia [Recovered/Resolved]
  - Ocular hyperaemia [Recovered/Resolved]
  - Scleral hyperaemia [Recovered/Resolved]

NARRATIVE: CASE EVENT DATE: 20150203
